FAERS Safety Report 14351960 (Version 1)
Quarter: 2018Q1

REPORT INFORMATION
  Report Type: Spontaneous
  Country: US (occurrence: US)
  Receive Date: 20180103
  Receipt Date: 20180103
  Transmission Date: 20180509
  Serious: No
  Sender: FDA-Public Use
  Company Number: None

PATIENT
  Age: 44 Year
  Sex: Male

DRUGS (1)
  1. GLATIRAMER 20MG PFS INJ (30/BOX) [Suspect]
     Active Substance: GLATIRAMER

REACTIONS (2)
  - Nephrolithiasis [None]
  - No reaction on previous exposure to drug [None]

NARRATIVE: CASE EVENT DATE: 20171115
